FAERS Safety Report 10660353 (Version 1)
Quarter: 2014Q4

REPORT INFORMATION
  Report Type: Report from Study
  Country: US (occurrence: US)
  Receive Date: 20141217
  Receipt Date: 20141217
  Transmission Date: 20150529
  Serious: Yes (Hospitalization)
  Sender: FDA-Public Use
  Company Number: US-ARIAD PHARMACEUTICALS, INC-2014US004200

PATIENT

DRUGS (1)
  1. PONATINIB [Suspect]
     Active Substance: PONATINIB
     Indication: ACUTE LYMPHOCYTIC LEUKAEMIA
     Dosage: 30 MG, QD
     Route: 048

REACTIONS (7)
  - Candida infection [Unknown]
  - Hypomagnesaemia [Unknown]
  - Anaemia [Unknown]
  - Clostridium difficile colitis [Unknown]
  - Thrombocytopenia [Unknown]
  - Pruritus [Unknown]
  - Visual impairment [Unknown]
